FAERS Safety Report 15965428 (Version 2)
Quarter: 2019Q1

REPORT INFORMATION
  Report Type: Spontaneous
  Country: ES (occurrence: ES)
  Receive Date: 20190215
  Receipt Date: 20190315
  Transmission Date: 20190418
  Serious: Yes (Death, Other)
  Sender: FDA-Public Use
  Company Number: ES-BRISTOL-MYERS SQUIBB COMPANY-BMS-2019-014770

PATIENT
  Age: 48 Year
  Sex: Female

DRUGS (1)
  1. NIVOLUMAB [Suspect]
     Active Substance: NIVOLUMAB
     Indication: HODGKIN^S DISEASE
     Dosage: 3 MILLIGRAM/KILOGRAM, Q3WK
     Route: 042
     Dates: start: 201510, end: 201601

REACTIONS (7)
  - Off label use [Unknown]
  - Hepatic function abnormal [Unknown]
  - Encephalopathy [Fatal]
  - Graft versus host disease [Fatal]
  - Dermatitis exfoliative generalised [Unknown]
  - Thrombocytopenia [Unknown]
  - Renal failure [Unknown]
